FAERS Safety Report 10810820 (Version 1)
Quarter: 2015Q1

REPORT INFORMATION
  Report Type: Report from Study
  Country: US (occurrence: US)
  Receive Date: 20150217
  Receipt Date: 20150217
  Transmission Date: 20150721
  Serious: No
  Sender: FDA-Public Use
  Company Number: US-ABBVIE-14K-163-1260857-00

PATIENT
  Age: 54 Year
  Sex: Female

DRUGS (6)
  1. PREDNISONE. [Concomitant]
     Active Substance: PREDNISONE
     Indication: PRODUCT USED FOR UNKNOWN INDICATION
     Dosage: TAPERED DOWN
  2. PREDNISONE. [Concomitant]
     Active Substance: PREDNISONE
  3. HUMIRA [Suspect]
     Active Substance: ADALIMUMAB
     Dates: end: 2014
  4. HUMIRA [Suspect]
     Active Substance: ADALIMUMAB
     Dates: start: 2014
  5. HUMIRA [Suspect]
     Active Substance: ADALIMUMAB
     Indication: CROHN^S DISEASE
     Dates: start: 201311, end: 201311
  6. HUMIRA [Suspect]
     Active Substance: ADALIMUMAB
     Dates: start: 2013, end: 2013

REACTIONS (5)
  - Anorectal discomfort [Recovering/Resolving]
  - Anorectal discomfort [Unknown]
  - Infected cyst [Not Recovered/Not Resolved]
  - Drug ineffective [Not Recovered/Not Resolved]
  - Painful defaecation [Recovering/Resolving]

NARRATIVE: CASE EVENT DATE: 201311
